FAERS Safety Report 7804140-6 (Version None)
Quarter: 2011Q4

REPORT INFORMATION
  Report Type: 
  Country: None (occurrence: None)
  Receive Date: 20111010
  Receipt Date: 20111006
  Transmission Date: 20120403
  Serious: Yes (Death)
  Sender: FDA-Public Use
  Company Number: PE-PFIZER INC-2011227019

PATIENT
  Age: 84 Year
  Sex: Female

DRUGS (4)
  1. ACCUPRIL [Suspect]
     Indication: HYPERTENSION
     Dosage: 20 MG, 1X/DAY
     Route: 048
     Dates: start: 20070101, end: 20110901
  2. ASPIRIN [Concomitant]
     Dosage: 100 MG, UNK
     Route: 048
  3. ATENOLOL [Concomitant]
     Route: 048
  4. LASIX [Concomitant]
     Dosage: UNK
     Route: 048

REACTIONS (1)
  - CARDIAC ARREST [None]
